FAERS Safety Report 15929241 (Version 2)
Quarter: 2019Q2

REPORT INFORMATION
  Report Type: Spontaneous
  Country: DE (occurrence: DE)
  Receive Date: 20190206
  Receipt Date: 20190508
  Transmission Date: 20190711
  Serious: Yes (Other)
  Sender: FDA-Public Use
  Company Number: DE-ASTRAZENECA-2019SE19143

PATIENT
  Age: 64 Year
  Sex: Female
  Weight: 58 kg

DRUGS (5)
  1. FASLODEX [Suspect]
     Active Substance: FULVESTRANT
     Route: 030
  2. LYNPARZA [Suspect]
     Active Substance: OLAPARIB
     Indication: BREAST CANCER METASTATIC
     Dosage: 100.0MG UNKNOWN
     Route: 048
     Dates: start: 20181218, end: 20190102
  3. EXEMESTANE. [Concomitant]
     Active Substance: EXEMESTANE
  4. PALBOCICLIB [Suspect]
     Active Substance: PALBOCICLIB
     Route: 048
  5. LYNPARZA [Suspect]
     Active Substance: OLAPARIB
     Indication: BREAST CANCER METASTATIC
     Dosage: 200.0MG UNKNOWN
     Route: 048
     Dates: start: 20181025, end: 20181124

REACTIONS (28)
  - Metastases to pleura [Unknown]
  - Bronchitis [Unknown]
  - Tachycardia [Unknown]
  - Off label use [Unknown]
  - Pericardial effusion [Unknown]
  - Ascites [Unknown]
  - Osteonecrosis of jaw [Unknown]
  - Hyponatraemia [Recovered/Resolved]
  - Metastases to chest wall [Unknown]
  - General physical condition decreased [Recovering/Resolving]
  - Oedema peripheral [Recovering/Resolving]
  - Gamma-glutamyltransferase increased [Unknown]
  - Cardiovascular disorder [Unknown]
  - Anaemia [Not Recovered/Not Resolved]
  - Metastases to skin [Unknown]
  - Malignant neoplasm progression [Unknown]
  - Dyspnoea [Unknown]
  - Cardiac failure [Unknown]
  - Blood alkaline phosphatase increased [Unknown]
  - Hypokalaemia [Recovered/Resolved]
  - Alanine aminotransferase increased [Unknown]
  - Decreased appetite [Unknown]
  - Aspartate aminotransferase increased [Unknown]
  - Gastrointestinal hypomotility [Unknown]
  - Platelet count increased [Unknown]
  - Pleural effusion [Unknown]
  - Back pain [Unknown]
  - Asthenia [Recovering/Resolving]

NARRATIVE: CASE EVENT DATE: 201605
